FAERS Safety Report 8459556 (Version 4)
Quarter: 2013Q1

REPORT INFORMATION
  Report Type: Spontaneous
  Country: US (occurrence: US)
  Receive Date: 20120314
  Receipt Date: 20130221
  Transmission Date: 20140127
  Serious: No
  Sender: FDA-Public Use
  Company Number: US-ASTRAZENECA-2012SE00147

PATIENT
  Age: 61 Year
  Sex: Female

DRUGS (1)
  1. TOPROL XL [Suspect]
     Route: 048

REACTIONS (8)
  - Abnormal behaviour [Unknown]
  - Bronchitis [Recovered/Resolved]
  - Cough [Recovered/Resolved]
  - Lower respiratory tract infection [Unknown]
  - Malaise [Unknown]
  - Pyrexia [Unknown]
  - Throat irritation [Recovered/Resolved]
  - Drug dose omission [Unknown]
